FAERS Safety Report 8297921-9 (Version None)
Quarter: 2012Q2

REPORT INFORMATION
  Report Type: 
  Country: None (occurrence: None)
  Receive Date: 20120419
  Receipt Date: 20120411
  Transmission Date: 20120825
  Serious: Yes (Other)
  Sender: FDA-Public Use
  Company Number: US-BRISTOL-MYERS SQUIBB COMPANY-16514762

PATIENT
  Age: 53 Year
  Sex: Female
  Weight: 100 kg

DRUGS (1)
  1. ABILIFY [Suspect]
     Indication: BIPOLAR DISORDER
     Dosage: INTERRUPTED AND RESTARTED IN 2009
     Dates: start: 20080501, end: 20090101

REACTIONS (4)
  - MANIA [None]
  - HYPOTENSION [None]
  - DRUG INEFFECTIVE [None]
  - WEIGHT INCREASED [None]
